FAERS Safety Report 4423738-9 (Version None)
Quarter: 2004Q3

REPORT INFORMATION
  Report Type: 
  Country: None (occurrence: None)
  Receive Date: 20040805
  Receipt Date: 20040723
  Transmission Date: 20050211
  Serious: Yes (Hospitalization)
  Sender: FDA-Public Use
  Company Number: 2004-DE-04096GD

PATIENT
  Age: 80 Year
  Sex: Female

DRUGS (4)
  1. CLARITHROMYCIN [Suspect]
     Indication: MYCOBACTERIAL INFECTION
  2. ISONIACID (ISONIAZID) [Concomitant]
  3. RIFAMPICIN [Concomitant]
  4. ETHAMBUTOL HCL [Concomitant]

REACTIONS (3)
  - ACID FAST BACILLI INFECTION [None]
  - EOSINOPHILIC PNEUMONIA [None]
  - LUNG CONSOLIDATION [None]
